FAERS Safety Report 5476857-2 (Version None)
Quarter: 2007Q4

REPORT INFORMATION
  Report Type: 
  Country: None (occurrence: None)
  Receive Date: 20071004
  Receipt Date: 20070924
  Transmission Date: 20080405
  Serious: Yes (Hospitalization)
  Sender: FDA-Public Use
  Company Number: GB-AMGEN-UK245327

PATIENT
  Sex: Male
  Weight: 105 kg

DRUGS (2)
  1. PANITUMUMAB [Suspect]
     Indication: COLORECTAL CANCER
     Route: 041
     Dates: start: 20070917
  2. IRINOTECAN HCL [Suspect]
     Route: 041
     Dates: start: 20070917

REACTIONS (3)
  - DIARRHOEA [None]
  - NEUTROPENIC SEPSIS [None]
  - VOMITING [None]
